FAERS Safety Report 10010650 (Version 1)
Quarter: 2014Q1

REPORT INFORMATION
  Report Type: Spontaneous
  Country: US (occurrence: US)
  Receive Date: 20140314
  Receipt Date: 20140314
  Transmission Date: 20141002
  Serious: Yes (Other)
  Sender: FDA-Public Use
  Company Number: US-AMGEN-USASP2014017470

PATIENT
  Age: 50 Year
  Sex: Female

DRUGS (1)
  1. ENBREL [Suspect]
     Indication: PSORIATIC ARTHROPATHY
     Dosage: 50 ML, QWK
     Route: 065
     Dates: start: 201104

REACTIONS (7)
  - Mobility decreased [Not Recovered/Not Resolved]
  - Skin cancer [Recovered/Resolved]
  - Pain in jaw [Not Recovered/Not Resolved]
  - Bone swelling [Not Recovered/Not Resolved]
  - Ear disorder [Not Recovered/Not Resolved]
  - Tooth disorder [Unknown]
  - Inappropriate schedule of drug administration [Not Recovered/Not Resolved]
